FAERS Safety Report 5227462-4 (Version None)
Quarter: 2007Q1

REPORT INFORMATION
  Report Type: 
  Country: None (occurrence: None)
  Receive Date: 20070202
  Receipt Date: 20070119
  Transmission Date: 20070707
  Serious: Yes (Death, Other)
  Sender: FDA-Public Use
  Company Number: CH-ELI_LILLY_AND_COMPANY-CH200611003318

PATIENT
  Age: 63 Year
  Sex: Male

DRUGS (2)
  1. PEMETREXED [Suspect]
     Indication: PLEURAL MESOTHELIOMA MALIGNANT
     Dosage: 1000 MG, UNK
     Route: 042
     Dates: start: 20060808, end: 20060918
  2. *CISPLATIN [Suspect]
     Indication: PLEURAL MESOTHELIOMA MALIGNANT
     Dosage: 140 MG, OTHER
     Route: 042
     Dates: start: 20060808, end: 20060918

REACTIONS (15)
  - ATRIAL FIBRILLATION [None]
  - BRONCHIAL DISORDER [None]
  - BRONCHOPLEURAL FISTULA [None]
  - DIALYSIS [None]
  - EMPYEMA [None]
  - HAEMODYNAMIC INSTABILITY [None]
  - HEPATIC FAILURE [None]
  - LOW CARDIAC OUTPUT SYNDROME [None]
  - MULTI-ORGAN FAILURE [None]
  - PNEUMOCYSTIS JIROVECI PNEUMONIA [None]
  - PNEUMONITIS [None]
  - PULMONARY EMBOLISM [None]
  - RENAL FAILURE [None]
  - RESPIRATORY FAILURE [None]
  - SUPRAVENTRICULAR TACHYCARDIA [None]
